FAERS Safety Report 22958878 (Version 2)
Quarter: 2023Q4

REPORT INFORMATION
  Report Type: Report from Study
  Country: US (occurrence: US)
  Receive Date: 20230919
  Receipt Date: 20231107
  Transmission Date: 20240109
  Serious: No
  Sender: FDA-Public Use
  Company Number: US-SANOFI-01765145

PATIENT
  Age: 67 Year
  Sex: Male

DRUGS (1)
  1. EFANESOCTOCOG ALFA [Suspect]
     Active Substance: EFANESOCTOCOG ALFA
     Indication: Factor VIII deficiency
     Dosage: 4000 IU, QW
     Route: 042
     Dates: start: 20230831

REACTIONS (3)
  - Arthropathy [Recovered/Resolved]
  - Dehydration [Recovered/Resolved]
  - Dyspnoea [Recovered/Resolved]

NARRATIVE: CASE EVENT DATE: 20230101
